FAERS Safety Report 14907059 (Version 2)
Quarter: 2018Q3

REPORT INFORMATION
  Report Type: Spontaneous
  Country: US (occurrence: US)
  Receive Date: 20180517
  Receipt Date: 20180710
  Transmission Date: 20181010
  Serious: No
  Sender: FDA-Public Use
  Company Number: US-ASTRAZENECA-2018SE60202

PATIENT
  Sex: Female

DRUGS (1)
  1. BYDUREON [Suspect]
     Active Substance: EXENATIDE
     Route: 065

REACTIONS (14)
  - Injection site irritation [Unknown]
  - Urticaria [Unknown]
  - Wrong technique in product usage process [Unknown]
  - Injection site pain [Unknown]
  - Intentional product misuse [Unknown]
  - Inflammation [Unknown]
  - Haemoglobin decreased [Unknown]
  - Injection site pruritus [Unknown]
  - Injection site erythema [Unknown]
  - Nasopharyngitis [Unknown]
  - Dysphonia [Unknown]
  - Mass [Unknown]
  - Product compounding quality issue [Unknown]
  - Injection site nodule [Unknown]
